FAERS Safety Report 11389237 (Version 2)
Quarter: 2015Q3

REPORT INFORMATION
  Report Type: Report from Study
  Country: CZ (occurrence: CZ)
  Receive Date: 20150817
  Receipt Date: 20150828
  Transmission Date: 20151125
  Serious: Yes (Hospitalization)
  Sender: FDA-Public Use
  Company Number: CZ-BAXALTA-2015BLT000996

PATIENT
  Age: 1 Year
  Sex: Male

DRUGS (3)
  1. COLECALCIFEROLUM [Concomitant]
     Indication: PROPHYLAXIS
     Dosage: 500 IU, 1X A DAY
     Route: 048
     Dates: start: 20140618
  2. ADVATE [Suspect]
     Active Substance: ANTIHEMOPHILIC FACTOR, HUMAN RECOMBINANT
     Indication: HAEMORRHAGE PROPHYLAXIS
  3. ADVATE [Suspect]
     Active Substance: ANTIHEMOPHILIC FACTOR, HUMAN RECOMBINANT
     Indication: FACTOR VIII DEFICIENCY
     Dosage: 250 IU, ONCE
     Route: 042
     Dates: start: 20150709, end: 20150709

REACTIONS (1)
  - Gastroenteritis rotavirus [Recovered/Resolved]

NARRATIVE: CASE EVENT DATE: 20150712
